FAERS Safety Report 21795769 (Version 1)
Quarter: 2022Q4

REPORT INFORMATION
  Report Type: Spontaneous
  Country: FR (occurrence: FR)
  Receive Date: 20221229
  Receipt Date: 20221229
  Transmission Date: 20230112
  Serious: Yes (Hospitalization)
  Sender: FDA-Public Use
  Company Number: None

PATIENT
  Age: 99 Year
  Sex: Male

DRUGS (4)
  1. LEVOFLOXACIN [Suspect]
     Active Substance: LEVOFLOXACIN
     Indication: Infection
     Dosage: ROA-20045000
     Route: 042
     Dates: start: 20200424, end: 20200427
  2. CLOXACILLIN [Suspect]
     Active Substance: CLOXACILLIN
     Indication: Infection
     Dosage: ROA-20045000
     Route: 042
     Dates: start: 20200420, end: 20200427
  3. CEFOTAXIME SODIUM [Suspect]
     Active Substance: CEFOTAXIME SODIUM
     Indication: Infection
     Dosage: ROA-20045000
     Route: 042
     Dates: start: 20200419, end: 20200425
  4. CEFOTAXIME SODIUM [Suspect]
     Active Substance: CEFOTAXIME SODIUM
     Dosage: ROA-20045000
     Route: 042
     Dates: start: 20200420, end: 20200427

REACTIONS (1)
  - Drug reaction with eosinophilia and systemic symptoms [Recovered/Resolved]

NARRATIVE: CASE EVENT DATE: 20200425
